FAERS Safety Report 22651566 (Version 1)
Quarter: 2023Q2

REPORT INFORMATION
  Report Type: Spontaneous
  Country: None (occurrence: IE)
  Receive Date: 20230628
  Receipt Date: 20230628
  Transmission Date: 20230722
  Serious: Yes (Death, Other)
  Sender: FDA-Public Use
  Company Number: IE-B.Braun Medical Inc.-2143215

PATIENT
  Age: 60 Year
  Sex: Female
  Weight: 49 kg

DRUGS (1)
  1. ACETAMINOPHEN [Suspect]
     Active Substance: ACETAMINOPHEN
     Indication: Pain

REACTIONS (5)
  - Biliary sepsis [Fatal]
  - Acute hepatic failure [Fatal]
  - Ischaemic hepatitis [Fatal]
  - Toxicity to various agents [Fatal]
  - Hypotension [Fatal]
